FAERS Safety Report 13540236 (Version 1)
Quarter: 2017Q2

REPORT INFORMATION
  Report Type: Other
  Country: CA (occurrence: CA)
  Receive Date: 20170512
  Receipt Date: 20170512
  Transmission Date: 20170830
  Serious: Yes (Other)
  Sender: FDA-Public Use
  Company Number: CA-APOTEX-2017AP011571

PATIENT
  Age: 38 Year
  Sex: Female

DRUGS (2)
  1. APO-AZITHROMYCIN TABLETS 250 MG [Suspect]
     Active Substance: AZITHROMYCIN ANHYDROUS
     Dosage: 500 MG, TOTAL
     Route: 048
  2. APO-AZITHROMYCIN TABLETS 250 MG [Suspect]
     Active Substance: AZITHROMYCIN ANHYDROUS
     Indication: PNEUMONIA
     Dosage: 250 MG, QD
     Route: 048

REACTIONS (10)
  - Hot flush [Not Recovered/Not Resolved]
  - Dyspnoea [Not Recovered/Not Resolved]
  - Mental disorder [Not Recovered/Not Resolved]
  - Nausea [Not Recovered/Not Resolved]
  - Paranoia [Not Recovered/Not Resolved]
  - Panic attack [Not Recovered/Not Resolved]
  - Insomnia [Not Recovered/Not Resolved]
  - Diarrhoea [Not Recovered/Not Resolved]
  - Crying [Not Recovered/Not Resolved]
  - Anxiety [Not Recovered/Not Resolved]
